FAERS Safety Report 23885519 (Version 1)
Quarter: 2024Q2

REPORT INFORMATION
  Report Type: Spontaneous
  Country: US (occurrence: US)
  Receive Date: 20240522
  Receipt Date: 20240522
  Transmission Date: 20240716
  Serious: Yes (Other)
  Sender: FDA-Public Use
  Company Number: US-SUN PHARMACEUTICAL INDUSTRIES LTD-2024R1-446970

PATIENT
  Sex: Female

DRUGS (1)
  1. PROPYLTHIOURACIL [Suspect]
     Active Substance: PROPYLTHIOURACIL
     Indication: Graves^ disease
     Dosage: 100 MILLIGRAM, QD
     Route: 065

REACTIONS (3)
  - Decreased appetite [Recovering/Resolving]
  - Lupus-like syndrome [Recovering/Resolving]
  - Weight decreased [Recovering/Resolving]
